FAERS Safety Report 9786609 (Version 2)
Quarter: 2013Q4

REPORT INFORMATION
  Report Type: Spontaneous
  Country: US (occurrence: DK)
  Receive Date: 20131227
  Receipt Date: 20131227
  Transmission Date: 20140711
  Serious: Yes (Disabling)
  Sender: FDA-Public Use
  Company Number: GXKR2009DK13700

PATIENT
  Sex: Female

DRUGS (1)
  1. GENTAMICIN [Suspect]
     Indication: OESOPHAGEAL PERFORATION
     Dates: end: 20070521

REACTIONS (7)
  - Dizziness [Not Recovered/Not Resolved]
  - Reading disorder [Not Recovered/Not Resolved]
  - Memory impairment [Not Recovered/Not Resolved]
  - Speech disorder [Not Recovered/Not Resolved]
  - Pain [Not Recovered/Not Resolved]
  - Fatigue [Not Recovered/Not Resolved]
  - Coordination abnormal [Not Recovered/Not Resolved]
